FAERS Safety Report 20696929 (Version 1)
Quarter: 2022Q2

REPORT INFORMATION
  Report Type: Spontaneous
  Country: US (occurrence: US)
  Receive Date: 20220411
  Receipt Date: 20220411
  Transmission Date: 20220720
  Serious: No
  Sender: FDA-Public Use
  Company Number: US-Adamas_Pharmaceuticals-USA-POI1235202200012

PATIENT
  Age: 63 Year
  Sex: Male
  Weight: 115.77 kg

DRUGS (4)
  1. OSMOLEX ER [Suspect]
     Active Substance: AMANTADINE
     Indication: Parkinson^s disease
     Dates: start: 20210226, end: 20220116
  2. OSMOLEX ER [Suspect]
     Active Substance: AMANTADINE
     Dates: start: 20220117, end: 20220120
  3. OSMOLEX ER [Suspect]
     Active Substance: AMANTADINE
     Dates: start: 20220121, end: 20220206
  4. OSMOLEX ER [Suspect]
     Active Substance: AMANTADINE
     Dates: start: 20220207

REACTIONS (1)
  - Product use issue [Unknown]

NARRATIVE: CASE EVENT DATE: 20220117
